FAERS Safety Report 17054589 (Version 1)
Quarter: 2019Q4

REPORT INFORMATION
  Report Type: Spontaneous
  Country: US (occurrence: US)
  Receive Date: 20191120
  Receipt Date: 20191120
  Transmission Date: 20200122
  Serious: No
  Sender: FDA-Public Use
  Company Number: US-LEXICON PHARMACEUTICALS, INC-19-1606-01033

PATIENT
  Sex: Female

DRUGS (24)
  1. OXYCODONE HYDROCHLORIDE. [Concomitant]
     Active Substance: OXYCODONE HYDROCHLORIDE
  2. PEPCID [Concomitant]
     Active Substance: FAMOTIDINE
  3. PROZAC [Concomitant]
     Active Substance: FLUOXETINE HYDROCHLORIDE
  4. XANAX [Concomitant]
     Active Substance: ALPRAZOLAM
  5. AMBIEN [Concomitant]
     Active Substance: ZOLPIDEM TARTRATE
  6. OCTREOTIDE. [Concomitant]
     Active Substance: OCTREOTIDE
  7. XERMELO [Suspect]
     Active Substance: TELOTRISTAT ETHYL
     Indication: CARCINOID SYNDROME
     Dates: start: 20190504, end: 2019
  8. AFINITOR [Concomitant]
     Active Substance: EVEROLIMUS
  9. BYSTOLIC [Concomitant]
     Active Substance: NEBIVOLOL HYDROCHLORIDE
  10. SENNA [Concomitant]
     Active Substance: SENNA LEAF\SENNOSIDES\SENNOSIDES A AND B
  11. CREON [Concomitant]
     Active Substance: PANCRELIPASE AMYLASE\PANCRELIPASE LIPASE\PANCRELIPASE PROTEASE
  12. HYDROCHLOROTHIAZIDE. [Concomitant]
     Active Substance: HYDROCHLOROTHIAZIDE
  13. SOMATULINE [Concomitant]
     Active Substance: LANREOTIDE ACETATE
  14. ASPIRIN. [Concomitant]
     Active Substance: ASPIRIN
  15. ERGOCALCIFEROL. [Concomitant]
     Active Substance: ERGOCALCIFEROL
  16. VYVANSE [Concomitant]
     Active Substance: LISDEXAMFETAMINE DIMESYLATE
  17. WELLBUTRIN [Concomitant]
     Active Substance: BUPROPION HYDROCHLORIDE
  18. XERMELO [Suspect]
     Active Substance: TELOTRISTAT ETHYL
     Dates: start: 2019
  19. LISINOPRIL. [Concomitant]
     Active Substance: LISINOPRIL
  20. BRILINTA [Concomitant]
     Active Substance: TICAGRELOR
  21. CLONIDINE. [Concomitant]
     Active Substance: CLONIDINE
  22. ZOFRAN [Concomitant]
     Active Substance: ONDANSETRON HYDROCHLORIDE
  23. COREG [Concomitant]
     Active Substance: CARVEDILOL
  24. MORPHINE [Concomitant]
     Active Substance: MORPHINE

REACTIONS (1)
  - Constipation [Unknown]

NARRATIVE: CASE EVENT DATE: 2019
